FAERS Safety Report 20683657 (Version 2)
Quarter: 2022Q3

REPORT INFORMATION
  Report Type: Report from Study
  Country: US (occurrence: US)
  Receive Date: 20220407
  Receipt Date: 20220708
  Transmission Date: 20221026
  Serious: Yes (Death, Disabling, Other)
  Sender: FDA-Public Use
  Company Number: US-REGENERON PHARMACEUTICALS, INC.-2022-18205

PATIENT
  Sex: Male

DRUGS (26)
  1. EYLEA [Suspect]
     Active Substance: AFLIBERCEPT
     Indication: Diabetic retinopathy
     Dosage: 2 MG, VARIABLE, RIGHT EYE
     Route: 031
     Dates: start: 20141222, end: 20141222
  2. EYLEA [Suspect]
     Active Substance: AFLIBERCEPT
     Indication: Diabetic retinal oedema
     Dosage: 2 MG, VARIABLE, RIGHT EYE
     Route: 031
     Dates: start: 20150126, end: 20150126
  3. EYLEA [Suspect]
     Active Substance: AFLIBERCEPT
     Dosage: 2 MG, VARIABLE, RIGHT EYE
     Route: 031
     Dates: start: 20150323, end: 20150323
  4. EYLEA [Suspect]
     Active Substance: AFLIBERCEPT
     Dosage: 2 MG, VARIABLE, RIGHT EYE
     Route: 031
     Dates: start: 20150511, end: 20150511
  5. EYLEA [Suspect]
     Active Substance: AFLIBERCEPT
     Dosage: 2 MG, VARIABLE, RIGHT EYE
     Route: 031
     Dates: start: 20150803, end: 20150803
  6. EYLEA [Suspect]
     Active Substance: AFLIBERCEPT
     Dosage: 2 MG, VARIABLE, RIGHT EYE
     Route: 031
     Dates: start: 20150928, end: 20150928
  7. EYLEA [Suspect]
     Active Substance: AFLIBERCEPT
     Dosage: 2 MG, VARIABLE, RIGHT EYE
     Route: 031
     Dates: start: 20151207, end: 20151207
  8. EYLEA [Suspect]
     Active Substance: AFLIBERCEPT
     Dosage: 2 MG, VARIABLE, RIGHT EYE
     Route: 031
     Dates: start: 20160222, end: 20160222
  9. EYLEA [Suspect]
     Active Substance: AFLIBERCEPT
     Dosage: 2 MG, VARIABLE, RIGHT EYE
     Route: 031
     Dates: start: 20160411, end: 20160411
  10. EYLEA [Suspect]
     Active Substance: AFLIBERCEPT
     Dosage: 2 MG, VARIABLE, RIGHT EYE
     Route: 031
     Dates: start: 20170220, end: 20170220
  11. EYLEA [Suspect]
     Active Substance: AFLIBERCEPT
     Dosage: 2 MG, VARIABLE, RIGHT EYE
     Route: 031
     Dates: start: 20170710, end: 20170710
  12. EYLEA [Suspect]
     Active Substance: AFLIBERCEPT
     Dosage: 2 MG, VARIABLE, RIGHT EYE
     Route: 031
     Dates: start: 20171127, end: 20171127
  13. EYLEA [Suspect]
     Active Substance: AFLIBERCEPT
     Dosage: 2 MG, VARIABLE, RIGHT EYE
     Route: 031
     Dates: start: 20180219, end: 20180219
  14. EYLEA [Suspect]
     Active Substance: AFLIBERCEPT
     Dosage: 2 MG, VARIABLE, RIGHT EYE
     Route: 031
     Dates: start: 20180618, end: 20180618
  15. EYLEA [Suspect]
     Active Substance: AFLIBERCEPT
     Dosage: 2 MG, VARIABLE, RIGHT EYE
     Route: 031
     Dates: start: 20181126, end: 20181126
  16. EYLEA [Suspect]
     Active Substance: AFLIBERCEPT
     Dosage: 2 MG, VARIABLE, RIGHT EYE
     Route: 031
     Dates: start: 20200602, end: 20200602
  17. ASPIRIN [Concomitant]
     Active Substance: ASPIRIN
     Indication: Product used for unknown indication
  18. ATORVASTATIN CALCIUM [Concomitant]
     Active Substance: ATORVASTATIN CALCIUM
     Indication: Product used for unknown indication
  19. CARVEDILOL [Concomitant]
     Active Substance: CARVEDILOL
     Indication: Product used for unknown indication
  20. LASIX [Concomitant]
     Active Substance: FUROSEMIDE
     Indication: Product used for unknown indication
  21. INSULIN DETEMIR [Concomitant]
     Active Substance: INSULIN DETEMIR
     Indication: Product used for unknown indication
  22. MULTIVITAMIN                       /00097801/ [Concomitant]
     Indication: Product used for unknown indication
  23. VITAMIN D3 [Concomitant]
     Active Substance: CHOLECALCIFEROL
     Indication: Product used for unknown indication
  24. ALCAINE [Concomitant]
     Active Substance: PROPARACAINE HYDROCHLORIDE
     Indication: Anaesthesia
  25. XYLOCAINE                          /00033401/ [Concomitant]
     Indication: Anaesthesia
  26. PHENYLEPHRINE W/TROPICAMIDE [Concomitant]
     Indication: Mydriasis
     Dosage: OU
     Dates: start: 20211101

REACTIONS (6)
  - Death [Fatal]
  - Blindness unilateral [Unknown]
  - Open angle glaucoma [Unknown]
  - Vitreous haemorrhage [Unknown]
  - Vitreous degeneration [Unknown]
  - Vision blurred [Unknown]

NARRATIVE: CASE EVENT DATE: 20200601
